FAERS Safety Report 8496423-4 (Version None)
Quarter: 2012Q3

REPORT INFORMATION
  Report Type: 
  Country: None (occurrence: None)
  Receive Date: 20120709
  Receipt Date: 20120628
  Transmission Date: 20120928
  Serious: Yes (Hospitalization, Other)
  Sender: FDA-Public Use
  Company Number: US-BRISTOL-MYERS SQUIBB COMPANY-16722779

PATIENT
  Age: 71 Year
  Sex: Male
  Weight: 93 kg

DRUGS (1)
  1. COUMADIN [Suspect]
     Dates: start: 19950101

REACTIONS (8)
  - GASTROOESOPHAGEAL REFLUX DISEASE [None]
  - RECTAL HAEMORRHAGE [None]
  - CONSTIPATION [None]
  - INTERNATIONAL NORMALISED RATIO ABNORMAL [None]
  - POLYP [None]
  - PROSTATIC SPECIFIC ANTIGEN INCREASED [None]
  - CHROMATURIA [None]
  - WEIGHT DECREASED [None]
